FAERS Safety Report 8589303-7 (Version None)
Quarter: 2012Q3

REPORT INFORMATION
  Report Type: 
  Country: None (occurrence: None)
  Receive Date: 20120813
  Receipt Date: 20120803
  Transmission Date: 20120928
  Serious: Yes (Hospitalization)
  Sender: FDA-Public Use
  Company Number: US-BAXTER-2012BAX011158

PATIENT
  Sex: Female

DRUGS (2)
  1. DIANEAL [Suspect]
     Indication: PERITONEAL DIALYSIS
     Route: 033
     Dates: start: 20080708
  2. DIANEAL [Suspect]
     Route: 033
     Dates: start: 20080708

REACTIONS (3)
  - CHEST PAIN [None]
  - ADVERSE DRUG REACTION [None]
  - DERMATITIS CONTACT [None]
